FAERS Safety Report 6007910-2 (Version None)
Quarter: 2008Q4

REPORT INFORMATION
  Report Type: 
  Country: None (occurrence: None)
  Receive Date: 20081217
  Receipt Date: 20080610
  Transmission Date: 20090506
  Serious: No
  Sender: FDA-Public Use
  Company Number: US-ASTRAZENECA-2008UW11612

PATIENT
  Age: 28800 Day
  Sex: Female
  Weight: 59.9 kg

DRUGS (3)
  1. CRESTOR [Suspect]
     Indication: HYPERCHOLESTEROLAEMIA
     Dosage: 5 MG
     Route: 048
     Dates: start: 20080501
  2. DIOVAN HCT [Concomitant]
  3. ALENDRONATE SODIUM [Concomitant]

REACTIONS (1)
  - HYPERTENSION [None]
